FAERS Safety Report 23501812 (Version 1)
Quarter: 2024Q1

REPORT INFORMATION
  Report Type: Spontaneous
  Country: US (occurrence: US)
  Receive Date: 20240208
  Receipt Date: 20240208
  Transmission Date: 20240410
  Serious: Yes (Other)
  Sender: FDA-Public Use
  Company Number: US-ANIPHARMA-2023-US-044550

PATIENT
  Sex: Male

DRUGS (2)
  1. CORTICOTROPIN [Suspect]
     Active Substance: CORTICOTROPIN
     Indication: Sarcoidosis
     Dosage: INJECT 80 UNITS (1ML) SUBCUTANEOUSLY EVERY 3 DAYS (DISCARD VIAL 28 DAYS AFTER INITIAL)
     Route: 058
     Dates: start: 20230816, end: 20231226
  2. BD PEN MINI MIS [Concomitant]

REACTIONS (1)
  - Diabetes mellitus [Unknown]
